FAERS Safety Report 5955563-1 (Version None)
Quarter: 2008Q4

REPORT INFORMATION
  Report Type: 
  Country: None (occurrence: None)
  Receive Date: 20081117
  Receipt Date: 20081111
  Transmission Date: 20090506
  Serious: Yes (Other)
  Sender: FDA-Public Use
  Company Number: US-JNJFOC-20081103074

PATIENT
  Age: 61 Year
  Sex: Female
  Weight: 49.9 kg

DRUGS (5)
  1. EXTRA STRENGTH TYLENOL [Suspect]
     Route: 048
  2. EXTRA STRENGTH TYLENOL [Suspect]
     Indication: MYALGIA
     Route: 048
  3. LISINOPRIL [Concomitant]
     Indication: HYPERTENSION
  4. CALAN [Concomitant]
     Indication: HYPERTENSION
  5. PROTONIX [Concomitant]
     Indication: GASTROOESOPHAGEAL REFLUX DISEASE

REACTIONS (4)
  - COUGH [None]
  - HYPERSENSITIVITY [None]
  - SWOLLEN TONGUE [None]
  - TONGUE DISORDER [None]
